FAERS Safety Report 7087317-X (Version None)
Quarter: 2010Q4

REPORT INFORMATION
  Report Type: 
  Country: None (occurrence: None)
  Receive Date: 20101108
  Receipt Date: 20101027
  Transmission Date: 20110411
  Serious: Yes (Hospitalization)
  Sender: FDA-Public Use
  Company Number: US-BIOGENIDEC-2010BI010894

PATIENT
  Age: 62 Year
  Sex: Male

DRUGS (14)
  1. TYSABRI [Suspect]
     Indication: MULTIPLE SCLEROSIS
     Route: 042
     Dates: start: 20080806
  2. AMLODIPINE [Concomitant]
     Indication: HYPERTENSION
     Route: 048
  3. ASCORBIC ACID [Concomitant]
     Route: 048
  4. BACLOFEN [Concomitant]
     Route: 048
  5. DOCUSATE SODIUM [Concomitant]
     Route: 048
  6. ENOXAPARIN SODIUM [Concomitant]
     Indication: THROMBOSIS PROPHYLAXIS
     Route: 058
  7. FLUOXETINE [Concomitant]
     Indication: MOOD SWINGS
     Route: 048
  8. FLUOXETINE [Concomitant]
     Indication: POST-TRAUMATIC STRESS DISORDER
     Route: 048
  9. GLYCERIN SUPPOSITORY [Concomitant]
     Route: 054
  10. LEVETIRACETAM [Concomitant]
     Route: 048
  11. LEVETIRACETAM [Concomitant]
     Route: 048
  12. LORATADINE [Concomitant]
     Route: 048
  13. TAMSULOSIN [Concomitant]
     Route: 048
  14. CHOLECALCIFEROL [Concomitant]
     Route: 048

REACTIONS (7)
  - AZOTAEMIA [None]
  - DIARRHOEA [None]
  - GLAUCOMA [None]
  - MEMORY IMPAIRMENT [None]
  - MUSCULAR WEAKNESS [None]
  - PROSTATOMEGALY [None]
  - URINARY TRACT INFECTION PSEUDOMONAL [None]
